FAERS Safety Report 16595382 (Version 1)
Quarter: 2019Q3

REPORT INFORMATION
  Report Type: Spontaneous
  Country: US (occurrence: US)
  Receive Date: 20190719
  Receipt Date: 20190719
  Transmission Date: 20191004
  Serious: No
  Sender: FDA-Public Use
  Company Number: US-TEVA-2019-US-1080378

PATIENT
  Age: 84 Year
  Sex: Female
  Weight: 58.96 kg

DRUGS (3)
  1. ARMOUR THYROID [Concomitant]
     Active Substance: THYROID, PORCINE
     Dates: start: 1989
  2. FEXOFENADINE [Suspect]
     Active Substance: FEXOFENADINE HYDROCHLORIDE
     Indication: RHINORRHOEA
     Dosage: 180 MG SINGLE DOSE
     Route: 048
     Dates: start: 20190709, end: 20190709
  3. VITAMINS NOS [Concomitant]
     Active Substance: VITAMINS
     Dates: start: 1989

REACTIONS (2)
  - Insomnia [Recovered/Resolved]
  - Product administered to patient of inappropriate age [Unknown]

NARRATIVE: CASE EVENT DATE: 20190709
